FAERS Safety Report 21073964 (Version 1)
Quarter: 2022Q3

REPORT INFORMATION
  Report Type: Spontaneous
  Country: US (occurrence: US)
  Receive Date: 20220713
  Receipt Date: 20220713
  Transmission Date: 20221027
  Serious: Yes (Other)
  Sender: FDA-Public Use
  Company Number: US-SANOFI-01182692

PATIENT
  Age: 55 Year
  Sex: Female

DRUGS (1)
  1. SOLIQUA 100/33 [Suspect]
     Active Substance: INSULIN GLARGINE\LIXISENATIDE
     Dates: start: 20210621, end: 20220602

REACTIONS (2)
  - Diabetes mellitus inadequate control [Unknown]
  - Drug ineffective [Unknown]
